FAERS Safety Report 17880678 (Version 1)
Quarter: 2020Q2

REPORT INFORMATION
  Report Type: Spontaneous
  Country: US (occurrence: US)
  Receive Date: 20200610
  Receipt Date: 20200610
  Transmission Date: 20200714
  Serious: No
  Sender: FDA-Public Use
  Company Number: US-ALNYLAM PHARMACEUTICALS, INC.-ALN-2020-000735

PATIENT
  Age: 79 Year
  Sex: Male

DRUGS (2)
  1. TAFAMIDIS [Concomitant]
     Active Substance: TAFAMIDIS MEGLUMINE
     Indication: PRODUCT USED FOR UNKNOWN INDICATION
  2. ONPATTRO [Suspect]
     Active Substance: PATISIRAN SODIUM
     Indication: HEREDITARY NEUROPATHIC AMYLOIDOSIS
     Dosage: UNK, Q3W
     Route: 042
     Dates: start: 2018

REACTIONS (3)
  - Dizziness [Recovered/Resolved]
  - Syncope [Recovered/Resolved]
  - Product dose omission [Unknown]

NARRATIVE: CASE EVENT DATE: 20200519
